FAERS Safety Report 18622856 (Version 1)
Quarter: 2020Q4

REPORT INFORMATION
  Report Type: Spontaneous
  Country: US (occurrence: US)
  Receive Date: 20201211
  Receipt Date: 20201211
  Transmission Date: 20210114
  Serious: Yes (Hospitalization)
  Sender: FDA-Public Use
  Company Number: None

PATIENT
  Age: 77 Year
  Sex: Male
  Weight: 113.4 kg

DRUGS (10)
  1. LISINOPRIL. [Concomitant]
     Active Substance: LISINOPRIL
  2. FOLIC ACID. [Concomitant]
     Active Substance: FOLIC ACID
  3. HUMIRA [Suspect]
     Active Substance: ADALIMUMAB
  4. ELIQUIS [Concomitant]
     Active Substance: APIXABAN
  5. LIPASE 12K/PROTEASE 38K/AMYLASE 60K (CREON) [Concomitant]
  6. METHOTREXATE. [Suspect]
     Active Substance: METHOTREXATE
  7. MESALAMINE. [Concomitant]
     Active Substance: MESALAMINE
  8. ROCALTROL [Concomitant]
     Active Substance: CALCITRIOL
  9. ASA 81 [Concomitant]
     Active Substance: ASPIRIN
  10. METOPROLOL TARTRATE (LOPRESSOR) [Concomitant]

REACTIONS (2)
  - Atrial fibrillation [None]
  - Cholecystitis acute [None]

NARRATIVE: CASE EVENT DATE: 20200522
